FAERS Safety Report 5319644-8 (Version None)
Quarter: 2007Q2

REPORT INFORMATION
  Report Type: 
  Country: None (occurrence: None)
  Receive Date: 20070501
  Receipt Date: 20070423
  Transmission Date: 20071010
  Serious: Yes (Death, Hospitalization, Other)
  Sender: FDA-Public Use
  Company Number: TPA2007A00849

PATIENT
  Sex: Female

DRUGS (5)
  1. ROZEREM [Suspect]
     Indication: ANXIETY
     Dosage: PER ORAL
     Route: 048
     Dates: start: 20070401, end: 20070401
  2. ROZEREM [Suspect]
     Indication: DIVORCED
     Dosage: PER ORAL
     Route: 048
     Dates: start: 20070401, end: 20070401
  3. ROZEREM [Suspect]
     Indication: INSOMNIA
     Dosage: PER ORAL
     Route: 048
     Dates: start: 20070401, end: 20070401
  4. ROZEREM [Suspect]
     Indication: MENTAL DISORDER
     Dosage: PER ORAL
     Route: 048
     Dates: start: 20070401, end: 20070401
  5. ROZEREM [Suspect]
     Indication: STRESS
     Dosage: PER ORAL
     Route: 048
     Dates: start: 20070401, end: 20070401

REACTIONS (1)
  - COMPLETED SUICIDE [None]
